FAERS Safety Report 17011912 (Version 1)
Quarter: 2019Q4

REPORT INFORMATION
  Report Type: Other
  Country: CA (occurrence: CA)
  Receive Date: 20191108
  Receipt Date: 20191108
  Transmission Date: 20200122
  Serious: Yes (Death, Hospitalization)
  Sender: FDA-Public Use
  Company Number: CA-PFIZER INC-2019481818

PATIENT
  Sex: Male

DRUGS (13)
  1. ELOXATIN [Suspect]
     Active Substance: OXALIPLATIN
     Indication: PANCREATIC CARCINOMA METASTATIC
     Dosage: 85 MG/M2, UNK
     Route: 065
  2. IRINOTECAN HCL [Suspect]
     Active Substance: IRINOTECAN HYDROCHLORIDE
     Indication: PANCREATIC CARCINOMA
     Dosage: 180 MG/M2, UNK
     Route: 065
  3. DEXAMETHASONE ACETATE [Concomitant]
     Active Substance: DEXAMETHASONE ACETATE
     Indication: PROPHYLAXIS OF NAUSEA AND VOMITING
     Dosage: UNK
  4. ONDANSETRON [Concomitant]
     Active Substance: ONDANSETRON
     Indication: PROPHYLAXIS OF NAUSEA AND VOMITING
     Dosage: UNK
     Route: 065
  5. FLUOROURACIL. [Suspect]
     Active Substance: FLUOROURACIL
     Indication: PANCREATIC CARCINOMA
     Dosage: 400 MG/M2, UNK
     Route: 041
  6. LEUCOVORIN. [Suspect]
     Active Substance: LEUCOVORIN
     Dosage: 400 MG/M2, UNK
     Route: 040
  7. FOLINIC ACID [Suspect]
     Active Substance: LEUCOVORIN
     Indication: PANCREATIC CARCINOMA
     Dosage: 400 MG/M2, UNK
     Route: 065
  8. FLUOROURACIL. [Suspect]
     Active Substance: FLUOROURACIL
     Dosage: 400 MG, UNK
     Route: 040
  9. OXALIPLATIN. [Suspect]
     Active Substance: OXALIPLATIN
     Indication: PANCREATIC CARCINOMA
     Dosage: 85 MG/M2, UNK
     Route: 065
  10. LEUCOVORIN. [Suspect]
     Active Substance: LEUCOVORIN
     Indication: PANCREATIC CARCINOMA
     Dosage: 1200 MG/M2, UNK
     Route: 041
  11. LEUCOVORIN. [Suspect]
     Active Substance: LEUCOVORIN
     Dosage: 400 MG/M2, UNK
     Route: 040
  12. LEUCOVORIN. [Suspect]
     Active Substance: LEUCOVORIN
     Dosage: 1200 MG/M2, 1X/DAY
     Route: 041
  13. FOLINIC ACID [Suspect]
     Active Substance: LEUCOVORIN
     Dosage: 1200 MG/M2, UNK
     Route: 065

REACTIONS (4)
  - Diarrhoea [Fatal]
  - Hyponatraemia [Fatal]
  - Pulmonary embolism [Fatal]
  - Respiratory distress [Fatal]
